FAERS Safety Report 9773856 (Version 1)
Quarter: 2013Q4

REPORT INFORMATION
  Report Type: Spontaneous
  Country: AU (occurrence: AU)
  Receive Date: 20131220
  Receipt Date: 20131220
  Transmission Date: 20140711
  Serious: No
  Sender: FDA-Public Use
  Company Number: AU-B.I. PHARMACEUTICALS,INC./RIDGEFIELD-2013-BI-39810AU

PATIENT
  Sex: 0

DRUGS (1)
  1. SPIRIVA [Suspect]

REACTIONS (1)
  - Off label use [Unknown]
